FAERS Safety Report 8113172-2 (Version None)
Quarter: 2012Q1

REPORT INFORMATION
  Report Type: 
  Country: None (occurrence: None)
  Receive Date: 20120203
  Receipt Date: 20120123
  Transmission Date: 20120608
  Serious: Yes (Other)
  Sender: FDA-Public Use
  Company Number: PHHY2012BR007503

PATIENT
  Sex: Female

DRUGS (4)
  1. INDAPAMIDE [Concomitant]
     Indication: CARDIAC DISORDER
     Dosage: UNK UKN, QD
     Route: 048
  2. TRILEPTAL [Suspect]
     Indication: PANIC DISORDER
     Dosage: 300 MG, BID
     Route: 048
  3. FLUOXETINE [Concomitant]
     Dosage: 60 MG, TID
     Route: 048
  4. ALPRAZOLAM [Concomitant]
     Indication: PANIC DISORDER
     Dosage: 2 MG, BID
     Route: 048

REACTIONS (12)
  - SKIN DISORDER [None]
  - VOMITING [None]
  - EMPHYSEMA [None]
  - ELECTROCARDIOGRAM ABNORMAL [None]
  - ANOSMIA [None]
  - HYPOPHAGIA [None]
  - HYPERTENSION [None]
  - WEIGHT DECREASED [None]
  - DIZZINESS [None]
  - DISEASE RECURRENCE [None]
  - HEARING IMPAIRED [None]
  - TREMOR [None]
